FAERS Safety Report 16295661 (Version 1)
Quarter: 2019Q2

REPORT INFORMATION
  Report Type: Not Available
  Country: ES (occurrence: ES)
  Receive Date: 20190510
  Receipt Date: 20190510
  Transmission Date: 20190711
  Serious: Yes (Hospitalization)
  Sender: FDA-Public Use
  Company Number: ES-BIOVITRUM-2019ES0905

PATIENT
  Age: 5 Year
  Sex: Male
  Weight: 20.2 kg

DRUGS (11)
  1. KINERET [Suspect]
     Active Substance: ANAKINRA
     Indication: JUVENILE IDIOPATHIC ARTHRITIS
     Dosage: 80 MG/DAY, 3 TIMES PER WEEK
     Dates: start: 20190216
  2. KINERET [Suspect]
     Active Substance: ANAKINRA
     Dosage: 80 MG, 4 TIMES PER WEEK (SOLUTION)
     Dates: start: 20181128, end: 20190204
  3. MASTICAL D [Concomitant]
     Indication: PROPHYLAXIS
     Dosage: 1 DF, DAILY (1 TABLET DAILY)
  4. ACFOL [Concomitant]
     Active Substance: FOLIC ACID
     Dosage: 10 MG, WEEKLY
     Dates: start: 20170101
  5. ACFOL [Concomitant]
     Active Substance: FOLIC ACID
     Indication: PROPHYLAXIS
     Dosage: 5 MG, WEEKLY
     Dates: start: 20170101
  6. PREDNISONE. [Concomitant]
     Active Substance: PREDNISONE
     Indication: JUVENILE IDIOPATHIC ARTHRITIS
     Dosage: 20 MG, DAILY
  7. METOJECT [Concomitant]
     Active Substance: METHOTREXATE SODIUM
     Indication: JUVENILE IDIOPATHIC ARTHRITIS
     Dosage: 10 MG / 0.2 ML, WEEKLY
     Dates: start: 20171221
  8. STELARA [Concomitant]
     Active Substance: USTEKINUMAB
     Indication: JUVENILE IDIOPATHIC ARTHRITIS
     Dosage: 80 MG, DAILY (SOLUTION)
     Dates: start: 20181128
  9. KINERET [Suspect]
     Active Substance: ANAKINRA
     Dosage: 80 MG/DAY
     Dates: start: 20190212, end: 20190215
  10. TOFACITINIB CITRATE [Suspect]
     Active Substance: TOFACITINIB CITRATE
     Indication: JUVENILE IDIOPATHIC ARTHRITIS
     Dosage: 3.5 ML, Q12H (SOLUTION)
     Dates: start: 20190206
  11. OMEPRAZOL [Concomitant]
     Active Substance: OMEPRAZOLE
     Dosage: 10 MG, DAILY

REACTIONS (3)
  - Juvenile idiopathic arthritis [Recovered/Resolved]
  - Contraindicated product prescribed [Recovered/Resolved]
  - Therapy non-responder [Recovered/Resolved]

NARRATIVE: CASE EVENT DATE: 20190209
